FAERS Safety Report 21023038 (Version 1)
Quarter: 2022Q2

REPORT INFORMATION
  Report Type: Spontaneous
  Country: US (occurrence: None)
  Receive Date: 20220629
  Receipt Date: 20220629
  Transmission Date: 20220720
  Serious: Yes (Hospitalization)
  Sender: FDA-Public Use
  Company Number: None

PATIENT
  Age: 69 Year
  Sex: Male

DRUGS (3)
  1. APIXABAN [Suspect]
     Active Substance: APIXABAN
     Indication: Atrial fibrillation
     Dates: start: 20210121
  2. APIXABAN [Suspect]
     Active Substance: APIXABAN
     Indication: Pulmonary embolism
  3. ASPIRIN [Suspect]
     Active Substance: ASPIRIN
     Indication: Cerebrovascular accident
     Dates: start: 20080513, end: 20210723

REACTIONS (7)
  - Syncope [None]
  - Fall [None]
  - Haemoglobin decreased [None]
  - Gastritis [None]
  - Haematuria [None]
  - Haemorrhagic diathesis [None]
  - Anaemia [None]

NARRATIVE: CASE EVENT DATE: 20210604
